FAERS Safety Report 8895139 (Version 1)
Quarter: 2012Q4

REPORT INFORMATION
  Report Type: 
  Country: US (occurrence: US)
  Receive Date: 20121107
  Receipt Date: 20121107
  Transmission Date: 20130627
  Serious: No
  Sender: FDA-Public Use
  Company Number: US-AMGEN-USASP2011056668

PATIENT
  Age: 66 Year
  Sex: Female
  Weight: 76.19 kg

DRUGS (16)
  1. ENBREL [Suspect]
     Indication: PRODUCT USED FOR UNKNOWN INDICATION
     Dosage: 25 mg, 2 times/wk
  2. CYMBALTA [Concomitant]
     Dosage: 60 mg, UNK
  3. ISOSORB MONO [Concomitant]
     Dosage: 120 mg, UNK
  4. CITRACAL PLUS [Concomitant]
     Dosage: UNK
  5. COLACE [Concomitant]
     Dosage: 100 mg, UNK
  6. NITROSTAT [Concomitant]
     Dosage: 0.4 mg, UNK
  7. CALCIUM [Concomitant]
     Dosage: 500 mg, UNK
  8. PLAVIX                             /01220701/ [Concomitant]
     Dosage: 75 mg, UNK
  9. GEODON                             /01487002/ [Concomitant]
     Dosage: 80 mg, UNK
  10. OMEPRAZOLE [Concomitant]
     Dosage: 20 mg, UNK
  11. ASA [Concomitant]
     Dosage: 81 mg, UNK
  12. ALBUTEROL                          /00139501/ [Concomitant]
     Dosage: 2 mg, UNK
  13. DILAUDID [Concomitant]
     Dosage: 4 mg, UNK
  14. METHOTREXATE [Concomitant]
     Dosage: 2.5 mg, UNK
  15. PRISTIQ [Concomitant]
     Dosage: 50 mg, UNK
  16. LYRICA [Concomitant]
     Dosage: 100 mg, UNK

REACTIONS (2)
  - Oedema peripheral [Unknown]
  - Pain in extremity [Unknown]
